FAERS Safety Report 6569263-0 (Version None)
Quarter: 2010Q1

REPORT INFORMATION
  Report Type: 
  Country: None (occurrence: None)
  Receive Date: 20100201
  Receipt Date: 20100201
  Transmission Date: 20100710
  Serious: Yes (Disabling)
  Sender: FDA-Public Use
  Company Number: None

PATIENT
  Age: 80 Year
  Sex: Female
  Weight: 74.5 kg

DRUGS (1)
  1. CLEVIPREX [Suspect]
     Indication: HYPERTENSION
     Dosage: INITIAL DOSE 1MG/HR TITRATE IV DIP
     Route: 041
     Dates: start: 20100110, end: 20100111

REACTIONS (4)
  - DYSPNOEA [None]
  - HYPOTENSION [None]
  - INFUSION SITE PHLEBITIS [None]
  - PRODUCT QUALITY ISSUE [None]
